FAERS Safety Report 5078905-0 (Version None)
Quarter: 2006Q3

REPORT INFORMATION
  Report Type: 
  Country: None (occurrence: None)
  Receive Date: 20060809
  Receipt Date: 20060809
  Transmission Date: 20061208
  Serious: Yes (Life-Threatening, Other)
  Sender: FDA-Public Use
  Company Number: None

PATIENT
  Age: 29 Year
  Sex: Female
  Weight: 58.9676 kg

DRUGS (3)
  1. EFFEXOR [Suspect]
     Indication: DEPRESSION
     Dosage: 225 MG 1 X DAY PO
     Route: 048
     Dates: start: 19990201, end: 20060617
  2. EFFEXOR [Suspect]
     Indication: INJURY
     Dosage: 225 MG 1 X DAY PO
     Route: 048
     Dates: start: 19990201, end: 20060617
  3. EFFEXOR [Suspect]
     Indication: MIGRAINE
     Dosage: 225 MG 1 X DAY PO
     Route: 048
     Dates: start: 19990201, end: 20060617

REACTIONS (23)
  - ABNORMAL BEHAVIOUR [None]
  - ACTIVITIES OF DAILY LIVING IMPAIRED [None]
  - AFFECT LABILITY [None]
  - CONVULSION [None]
  - DEPRESSION [None]
  - DISORIENTATION [None]
  - DISTURBANCE IN ATTENTION [None]
  - DIZZINESS [None]
  - DRUG DEPENDENCE [None]
  - DRUG WITHDRAWAL SYNDROME [None]
  - FAMILY STRESS [None]
  - FEAR [None]
  - HYPOAESTHESIA [None]
  - IMPAIRED WORK ABILITY [None]
  - INAPPROPRIATE SCHEDULE OF DRUG ADMINISTRATION [None]
  - INJURY [None]
  - MENTAL DISORDER [None]
  - OBSESSIVE-COMPULSIVE DISORDER [None]
  - PANIC ATTACK [None]
  - PARENT-CHILD PROBLEM [None]
  - PERSONALITY CHANGE [None]
  - SUICIDAL IDEATION [None]
  - WEIGHT DECREASED [None]
